FAERS Safety Report 22004544 (Version 1)
Quarter: 2023Q1

REPORT INFORMATION
  Report Type: Spontaneous
  Country: US (occurrence: US)
  Receive Date: 20230217
  Receipt Date: 20230217
  Transmission Date: 20230417
  Serious: Yes (Death, Hospitalization, Other)
  Sender: FDA-Public Use
  Company Number: US-ADVANZ PHARMA-202301000945

PATIENT

DRUGS (6)
  1. CLONIDINE [Suspect]
     Active Substance: CLONIDINE
     Dosage: UNK, INGESTION
     Route: 048
  2. AMLODIPINE [Suspect]
     Active Substance: AMLODIPINE BESYLATE
     Dosage: UNK, INGESTION
     Route: 048
  3. CARVEDILOL [Suspect]
     Active Substance: CARVEDILOL
     Dosage: UNK, INGESTION
     Route: 048
  4. LISINOPRIL [Suspect]
     Active Substance: LISINOPRIL
     Dosage: UNK, INGESTION
     Route: 048
  5. VORTIOXETINE [Suspect]
     Active Substance: VORTIOXETINE
     Dosage: UNK, INGESTION
     Route: 048
  6. CLONAZEPAM [Suspect]
     Active Substance: CLONAZEPAM
     Dosage: UNK, INGESTION
     Route: 048

REACTIONS (1)
  - Completed suicide [Fatal]
